FAERS Safety Report 8934855 (Version 10)
Quarter: 2016Q3

REPORT INFORMATION
  Report Type: Spontaneous
  Country: US (occurrence: US)
  Receive Date: 20121129
  Receipt Date: 20160714
  Transmission Date: 20161109
  Serious: Yes (Other)
  Sender: FDA-Public Use
  Company Number: US-009507513-1211USA011497

PATIENT
  Sex: Male
  Weight: 68.27 kg

DRUGS (7)
  1. PROPECIA [Suspect]
     Active Substance: FINASTERIDE
     Dosage: 1.25 MG
     Route: 048
     Dates: start: 201003, end: 20101125
  2. ROGAINE [Concomitant]
     Active Substance: MINOXIDIL
     Indication: ALOPECIA
     Dosage: 5%, 1 ML, BID
     Route: 061
     Dates: start: 2010, end: 201201
  3. ROGAINE [Concomitant]
     Active Substance: MINOXIDIL
     Dosage: 2%, 1 ML, BID
     Dates: start: 20120302
  4. PROPECIA [Suspect]
     Active Substance: FINASTERIDE
     Indication: ANDROGENETIC ALOPECIA
     Dosage: 1 MG, UNK
     Route: 048
     Dates: start: 20100805, end: 20101123
  5. PROPECIA [Suspect]
     Active Substance: FINASTERIDE
     Dosage: 1.25 MG QOD
     Route: 048
  6. PROPECIA [Suspect]
     Active Substance: FINASTERIDE
     Dosage: 0.5 QOD
     Route: 048
  7. FINASTERIDE. [Suspect]
     Active Substance: FINASTERIDE
     Indication: DIFFUSE ALOPECIA
     Dosage: 5 MG, 1/4 TAB, 1.25MG DAILY
     Route: 048
     Dates: start: 20100305, end: 20100723

REACTIONS (36)
  - Infectious mononucleosis [Unknown]
  - Hypotrichosis [Unknown]
  - Anorgasmia [Unknown]
  - Mental disorder [Unknown]
  - Micturition urgency [Unknown]
  - Hyperhidrosis [Unknown]
  - Disturbance in sexual arousal [Unknown]
  - Angiopathy [Unknown]
  - Attention deficit/hyperactivity disorder [Unknown]
  - Dihydrotestosterone decreased [Unknown]
  - Erectile dysfunction [Not Recovered/Not Resolved]
  - Sexual dysfunction [Not Recovered/Not Resolved]
  - Febrile convulsion [Unknown]
  - Wrong technique in product usage process [Unknown]
  - Testicular disorder [Unknown]
  - Cognitive disorder [Not Recovered/Not Resolved]
  - Fatigue [Not Recovered/Not Resolved]
  - H1N1 influenza [Unknown]
  - Pertussis [Unknown]
  - Blood testosterone increased [Unknown]
  - Peripheral sensory neuropathy [Unknown]
  - Semen liquefaction [Unknown]
  - Depression [Unknown]
  - Anal fissure [Unknown]
  - Proctalgia [Unknown]
  - Blood oestrogen increased [Unknown]
  - Dysuria [Unknown]
  - Testicular pain [Unknown]
  - Anxiety [Unknown]
  - Circumcision [Unknown]
  - Pollakiuria [Unknown]
  - Adverse event [Unknown]
  - Blood testosterone decreased [Recovered/Resolved]
  - Male orgasmic disorder [Unknown]
  - Urinary retention [Unknown]
  - Libido decreased [Not Recovered/Not Resolved]

NARRATIVE: CASE EVENT DATE: 2010
